FAERS Safety Report 17697401 (Version 1)
Quarter: 2020Q2

REPORT INFORMATION
  Report Type: Spontaneous
  Country: US (occurrence: US)
  Receive Date: 20200422
  Receipt Date: 20200422
  Transmission Date: 20200714
  Serious: Yes (Hospitalization)
  Sender: FDA-Public Use
  Company Number: None

PATIENT
  Age: 59 Year
  Sex: Female
  Weight: 76.2 kg

DRUGS (10)
  1. CALCIUM [Concomitant]
     Active Substance: CALCIUM
  2. IBRANCE [Suspect]
     Active Substance: PALBOCICLIB
     Indication: NEOPLASM MALIGNANT
     Route: 048
  3. FASLODEX [Concomitant]
     Active Substance: FULVESTRANT
  4. EXEMASTAN [Concomitant]
  5. LETROZOLE. [Concomitant]
     Active Substance: LETROZOLE
  6. ASPIRIN. [Concomitant]
     Active Substance: ASPIRIN
  7. WARFARIN [Concomitant]
     Active Substance: WARFARIN
  8. LISINOPRIL. [Concomitant]
     Active Substance: LISINOPRIL
  9. METOPROLOL. [Concomitant]
     Active Substance: METOPROLOL
  10. VITAMIN D3 [Concomitant]
     Active Substance: CHOLECALCIFEROL

REACTIONS (2)
  - Therapy interrupted [None]
  - Fall [None]
